FAERS Safety Report 6085657-4 (Version None)
Quarter: 2009Q1

REPORT INFORMATION
  Report Type: 
  Country: None (occurrence: None)
  Receive Date: 20090220
  Receipt Date: 20090216
  Transmission Date: 20090719
  Serious: Yes (Hospitalization)
  Sender: FDA-Public Use
  Company Number: NL-BAYER-200816524GPV

PATIENT
  Age: 49 Year
  Sex: Female

DRUGS (1)
  1. NEXAVAR [Suspect]
     Indication: RENAL CELL CARCINOMA
     Route: 048
     Dates: start: 20080401

REACTIONS (6)
  - ARRHYTHMIA [None]
  - ERUCTATION [None]
  - FEELING HOT [None]
  - NAUSEA [None]
  - PRURITUS [None]
  - RASH [None]
